FAERS Safety Report 9964412 (Version 3)
Quarter: 2014Q2

REPORT INFORMATION
  Report Type: Spontaneous
  Country: BR (occurrence: BR)
  Receive Date: 20140305
  Receipt Date: 20140430
  Transmission Date: 20141212
  Serious: Yes (Hospitalization, Other)
  Sender: FDA-Public Use
  Company Number: BR-ASTRAZENECA-2014SE13204

PATIENT
  Age: 954 Month
  Sex: Male
  Weight: 72 kg

DRUGS (7)
  1. ROSULIB [Suspect]
     Indication: CARDIAC DISORDER
     Dosage: DAILY
     Route: 048
     Dates: start: 2012
  2. BRILINTA [Suspect]
     Indication: CARDIOVASCULAR EVENT PROPHYLAXIS
     Route: 048
     Dates: start: 20140120
  3. DIOVAN AMLO FIX [Concomitant]
     Indication: CARDIAC DISORDER
     Dosage: DAILY
     Route: 048
     Dates: start: 2013
  4. DIACQUA [Concomitant]
     Indication: CARDIAC DISORDER
     Dosage: DAILY
     Route: 048
     Dates: start: 2012
  5. MONOCORDIL [Concomitant]
     Indication: CARDIAC DISORDER
     Dosage: DAILY
     Route: 048
     Dates: start: 2012
  6. CELEBRA [Concomitant]
     Indication: CARDIAC DISORDER
     Dosage: DAILY
     Route: 048
     Dates: start: 2012
  7. ASPIRINA PREVENT [Concomitant]
     Indication: CARDIAC DISORDER
     Dosage: DAILY
     Route: 048
     Dates: start: 2012

REACTIONS (8)
  - Coronary artery occlusion [Recovered/Resolved]
  - Haematochezia [Recovered/Resolved]
  - Malaise [Recovering/Resolving]
  - Weight decreased [Not Recovered/Not Resolved]
  - Urinary tract infection [Recovered/Resolved]
  - Back pain [Not Recovered/Not Resolved]
  - Amoebiasis [Unknown]
  - Dizziness [Recovering/Resolving]
